FAERS Safety Report 7164728-5 (Version None)
Quarter: 2010Q4

REPORT INFORMATION
  Report Type: 
  Country: None (occurrence: None)
  Receive Date: 20101215
  Receipt Date: 20101206
  Transmission Date: 20110411
  Serious: Yes (Hospitalization)
  Sender: FDA-Public Use
  Company Number: US-SANOFI-AVENTIS-2010SA074430

PATIENT
  Age: 63 Year
  Sex: Female

DRUGS (3)
  1. LANTUS [Suspect]
     Indication: TYPE 2 DIABETES MELLITUS
     Dosage: DOSE:32 UNIT(S)
     Route: 058
     Dates: start: 20050101
  2. GLIMEPIRIDE [Concomitant]
  3. METFORMIN HCL [Concomitant]

REACTIONS (4)
  - DIABETIC HYPERGLYCAEMIC COMA [None]
  - MALAISE [None]
  - RENAL FAILURE [None]
  - WEIGHT INCREASED [None]
